FAERS Safety Report 21022647 (Version 1)
Quarter: 2022Q2

REPORT INFORMATION
  Report Type: Spontaneous
  Country: CN (occurrence: CN)
  Receive Date: 20220629
  Receipt Date: 20220629
  Transmission Date: 20220720
  Serious: Yes (Other)
  Sender: FDA-Public Use
  Company Number: CN-PFIZER INC-PV202200009462

PATIENT
  Age: 14 Year
  Sex: Female
  Weight: 60 kg

DRUGS (4)
  1. ZOLOFT [Suspect]
     Active Substance: SERTRALINE HYDROCHLORIDE
     Indication: Anxiety
     Dosage: 75 MG, 1X/DAY
     Route: 048
     Dates: start: 20220528, end: 20220608
  2. ZOLOFT [Suspect]
     Active Substance: SERTRALINE HYDROCHLORIDE
     Indication: Depression
  3. WU LING JIAO NANG [Concomitant]
     Indication: Anxiety
     Dosage: 0.99 G, 3X/DAY
     Route: 048
     Dates: start: 20220528, end: 20220607
  4. WU LING JIAO NANG [Concomitant]
     Indication: Depression

REACTIONS (2)
  - Acute generalised exanthematous pustulosis [Recovering/Resolving]
  - Rash [Recovering/Resolving]

NARRATIVE: CASE EVENT DATE: 20220601
